FAERS Safety Report 11465376 (Version 1)
Quarter: 2015Q3

REPORT INFORMATION
  Report Type: Spontaneous
  Country: FR (occurrence: FR)
  Receive Date: 20150907
  Receipt Date: 20150907
  Transmission Date: 20151125
  Serious: Yes (Hospitalization)
  Sender: FDA-Public Use
  Company Number: FR-ACCORD-033410

PATIENT
  Age: 59 Year
  Sex: Male

DRUGS (5)
  1. CISPLATIN ACCORD [Suspect]
     Active Substance: CISPLATIN
     Indication: PRODUCT USED FOR UNKNOWN INDICATION
     Route: 042
     Dates: start: 20150801, end: 20150803
  2. ETOPOSIDE MYLAN [Suspect]
     Active Substance: ETOPOSIDE
     Indication: PRODUCT USED FOR UNKNOWN INDICATION
     Route: 042
     Dates: start: 20150801, end: 20150803
  3. METHYLPREDNISOLONE MYLAN [Suspect]
     Active Substance: METHYLPREDNISOLONE
     Indication: PRODUCT USED FOR UNKNOWN INDICATION
     Route: 042
     Dates: start: 20150801, end: 20150803
  4. HALDOL [Concomitant]
     Active Substance: HALOPERIDOL
     Route: 042
     Dates: start: 20150727, end: 20150803
  5. ONDANSETRON ACCORD [Suspect]
     Active Substance: ONDANSETRON
     Indication: PRODUCT USED FOR UNKNOWN INDICATION
     Route: 042
     Dates: start: 20150801, end: 20150803

REACTIONS (2)
  - Bradycardia [Recovered/Resolved]
  - Mydriasis [Unknown]

NARRATIVE: CASE EVENT DATE: 20150802
